FAERS Safety Report 23829989 (Version 4)
Quarter: 2024Q4

REPORT INFORMATION
  Report Type: Spontaneous
  Country: JP (occurrence: JP)
  Receive Date: 20240508
  Receipt Date: 20241205
  Transmission Date: 20250115
  Serious: Yes (Hospitalization, Other)
  Sender: PIERRE FABRE MEDICAMENT
  Company Number: JP-maruho-EVD202401202PFM

PATIENT
  Age: 22 Month
  Sex: Female
  Weight: 9.8 kg

DRUGS (6)
  1. PROPRANOLOL HYDROCHLORIDE [Suspect]
     Active Substance: PROPRANOLOL HYDROCHLORIDE
     Indication: Haemangioma of skin
     Dosage: 0.8 ML, BID (2/DAY)
     Dates: start: 20220909, end: 20220911
  2. PROPRANOLOL HYDROCHLORIDE [Suspect]
     Active Substance: PROPRANOLOL HYDROCHLORIDE
     Dosage: 1.6 ML, BID (2/DAY)
     Dates: start: 20220912, end: 20220914
  3. PROPRANOLOL HYDROCHLORIDE [Suspect]
     Active Substance: PROPRANOLOL HYDROCHLORIDE
     Dosage: 2.4 ML, BID (2/DAY)
     Dates: start: 20220915, end: 20230216
  4. PROPRANOLOL HYDROCHLORIDE [Suspect]
     Active Substance: PROPRANOLOL HYDROCHLORIDE
     Dosage: 2.5 ML, BID (2/DAY)
     Dates: start: 20230217
  5. PROPRANOLOL HYDROCHLORIDE [Suspect]
     Active Substance: PROPRANOLOL HYDROCHLORIDE
     Dosage: 3 ML, BID (2/DAY)
     Dates: start: 20231012, end: 20240125
  6. PROPRANOLOL HYDROCHLORIDE [Suspect]
     Active Substance: PROPRANOLOL HYDROCHLORIDE
     Dosage: 4 ML, BID (2/DAY)
     Dates: start: 20240126, end: 20240229

REACTIONS (3)
  - Aplasia pure red cell [Recovered/Resolved]
  - Product administered to patient of inappropriate age [Unknown]
  - Off label use [Unknown]

NARRATIVE: CASE EVENT DATE: 20240301
